FAERS Safety Report 13258546 (Version 3)
Quarter: 2017Q3

REPORT INFORMATION
  Report Type: Report from Study
  Country: None (occurrence: US)
  Receive Date: 20170222
  Receipt Date: 20170824
  Transmission Date: 20171127
  Serious: Yes (Hospitalization)
  Sender: FDA-Public Use
  Company Number: US-BAUSCH-BL-2017-004316

PATIENT
  Age: 57 Year
  Sex: Female

DRUGS (1)
  1. SYPRINE [Suspect]
     Active Substance: TRIENTINE HYDROCHLORIDE
     Indication: HEPATO-LENTICULAR DEGENERATION
     Dosage: ON EMPTY STOMACH
     Route: 048
     Dates: start: 1996, end: 20170126

REACTIONS (6)
  - Memory impairment [Recovering/Resolving]
  - Drug dose omission [Unknown]
  - Eating disorder [Recovering/Resolving]
  - Depression [Recovering/Resolving]
  - Hepatic function abnormal [Recovering/Resolving]
  - Malaise [Unknown]

NARRATIVE: CASE EVENT DATE: 2016
